FAERS Safety Report 5506143-3 (Version None)
Quarter: 2007Q4

REPORT INFORMATION
  Report Type: 
  Country: None (occurrence: None)
  Receive Date: 20071105
  Receipt Date: 20071101
  Transmission Date: 20080405
  Serious: Yes (Life-Threatening, Other)
  Sender: FDA-Public Use
  Company Number: PHBS2007JP18303

PATIENT
  Sex: Male
  Weight: 36 kg

DRUGS (11)
  1. TEGRETOL [Suspect]
     Indication: EPILEPSY
     Dosage: 200 MG, BID
     Route: 048
     Dates: start: 20030101
  2. EXCEGRAN [Suspect]
     Indication: EPILEPSY
     Dosage: 100 MG, BID
     Route: 048
     Dates: start: 20030101
  3. PHENOBARBITAL TAB [Suspect]
     Indication: EPILEPSY
     Dosage: 300 MG, BID
     Route: 048
     Dates: start: 20030101
  4. RISUMIC [Concomitant]
     Route: 065
  5. ZOLPIDEM [Concomitant]
     Route: 065
  6. SOLANAX [Concomitant]
     Route: 065
  7. ACTOS [Concomitant]
     Route: 065
  8. RESLIN [Concomitant]
     Route: 065
  9. GASMOTIN [Concomitant]
     Route: 065
  10. MAGMITT KENEI [Concomitant]
     Route: 065
  11. EPALRESTAT [Concomitant]
     Route: 065

REACTIONS (4)
  - BLOOD ALKALINE PHOSPHATASE INCREASED [None]
  - CALCIUM METABOLISM DISORDER [None]
  - CELLULITIS [None]
  - OSTEOMALACIA [None]
